FAERS Safety Report 8214462-5 (Version None)
Quarter: 2012Q1

REPORT INFORMATION
  Report Type: 
  Country: None (occurrence: None)
  Receive Date: 20120227
  Receipt Date: 20111205
  Transmission Date: 20120608
  Serious: No
  Sender: FDA-Public Use
  Company Number: 341345

PATIENT
  Age: 63 Year
  Sex: Female

DRUGS (1)
  1. VICTOZA [Suspect]
     Indication: TYPE 2 DIABETES MELLITUS
     Dosage: 1.2 MG, QD, SUBCUTANEOUS, 0.9 MG, QD, SUBCUTANEOUS
     Route: 058

REACTIONS (3)
  - BLOOD GLUCOSE DECREASED [None]
  - BOWEL MOVEMENT IRREGULARITY [None]
  - NAUSEA [None]
